FAERS Safety Report 15072719 (Version 2)
Quarter: 2019Q1

REPORT INFORMATION
  Report Type: Spontaneous
  Country: JP (occurrence: JP)
  Receive Date: 20180627
  Receipt Date: 20190124
  Transmission Date: 20190417
  Serious: Yes (Death, Other)
  Sender: FDA-Public Use
  Company Number: JP-009507513-1806JPN002714J

PATIENT
  Age: 8 Decade
  Sex: Male

DRUGS (2)
  1. CANCIDAS [Suspect]
     Active Substance: CASPOFUNGIN ACETATE
     Indication: SYSTEMIC CANDIDA
     Dosage: 70 MILLIGRAM, QD
     Route: 041
     Dates: start: 20180618, end: 20180620
  2. RIFAMPIN. [Concomitant]
     Active Substance: RIFAMPIN
     Dosage: UNK
     Route: 065

REACTIONS (1)
  - Lip and/or oral cavity cancer [Fatal]

NARRATIVE: CASE EVENT DATE: 201806
